FAERS Safety Report 6632257-0 (Version None)
Quarter: 2010Q1

REPORT INFORMATION
  Report Type: 
  Country: None (occurrence: None)
  Receive Date: 20100310
  Receipt Date: 20100224
  Transmission Date: 20100710
  Serious: Yes (Other)
  Sender: FDA-Public Use
  Company Number: 2010US000644

PATIENT
  Age: 81 Year
  Sex: Female

DRUGS (12)
  1. VESICARE [Suspect]
     Indication: INCONTINENCE
     Dosage: 5 MG, QOD, ORAL; 10 MG, ORAL
     Route: 048
     Dates: start: 20091101
  2. TOPROL-XL [Concomitant]
  3. AVAPRO [Concomitant]
  4. ASPIRIN [Concomitant]
  5. PLAVIX [Concomitant]
  6. NORVASC [Concomitant]
  7. MULTIVITAMIN [Concomitant]
  8. CHOLEST-OFF (SITOSTEROL) [Concomitant]
  9. VITAMIN E [Concomitant]
  10. COQ-10 (UBIDECARENONE) [Concomitant]
  11. CALCIUM (CALCIUM) [Concomitant]
  12. PRESERVISION LUTEIN EYE VITA.+MIN.SUP.SOFTG. (ASCORBIC ACID, CUPRIC OX [Concomitant]

REACTIONS (5)
  - ANURIA [None]
  - BLADDER DISORDER [None]
  - CONSTIPATION [None]
  - INAPPROPRIATE SCHEDULE OF DRUG ADMINISTRATION [None]
  - NOCTURIA [None]
